FAERS Safety Report 17310437 (Version 2)
Quarter: 2020Q4

REPORT INFORMATION
  Report Type: Spontaneous
  Country: US (occurrence: US)
  Receive Date: 20200123
  Receipt Date: 20201204
  Transmission Date: 20210113
  Serious: Yes (Hospitalization)
  Sender: FDA-Public Use
  Company Number: US-CELGENEUS-USA-20200107059

PATIENT
  Age: 72 Year
  Sex: Male

DRUGS (24)
  1. ABRAXANE [Suspect]
     Active Substance: PACLITAXEL
     Dosage: 151 MILLIGRAM
     Route: 042
     Dates: start: 20191003, end: 20191003
  2. ABRAXANE [Suspect]
     Active Substance: PACLITAXEL
     Dosage: 151 MILLIGRAM
     Route: 042
     Dates: start: 20191024, end: 20191024
  3. MEDI4736 (DURVALUMAB) [Suspect]
     Active Substance: DURVALUMAB
     Dosage: 1500 MILLIGRAM
     Route: 042
     Dates: start: 20190823, end: 20190823
  4. CARBOPLATIN. [Suspect]
     Active Substance: CARBOPLATIN
     Indication: NON-SMALL CELL LUNG CANCER STAGE IV
     Dosage: 428 MILLIGRAM
     Route: 042
     Dates: start: 20190711, end: 20190711
  5. CARBOPLATIN. [Suspect]
     Active Substance: CARBOPLATIN
     Dosage: 526 MILLIGRAM
     Route: 042
     Dates: start: 20190801, end: 20190801
  6. ABRAXANE [Suspect]
     Active Substance: PACLITAXEL
     Dosage: 189 MILLIGRAM
     Route: 042
     Dates: start: 20190718, end: 20190718
  7. MEDI4736 (DURVALUMAB) [Suspect]
     Active Substance: DURVALUMAB
     Indication: NON-SMALL CELL LUNG CANCER STAGE IV
     Dosage: 1500.0MG ONCE/SINGLE ADMINISTRATION
     Route: 042
     Dates: start: 20190711, end: 20190711
  8. MEDI4736 (DURVALUMAB) [Suspect]
     Active Substance: DURVALUMAB
     Dosage: 1500 MILLIGRAM
     Route: 042
     Dates: start: 20191126, end: 20191126
  9. CARBOPLATIN. [Suspect]
     Active Substance: CARBOPLATIN
     Dosage: 406 MILLIGRAM
     Route: 042
     Dates: start: 20191003, end: 20191003
  10. ABRAXANE [Suspect]
     Active Substance: PACLITAXEL
     Indication: NON-SMALL CELL LUNG CANCER STAGE IV
     Dosage: 189 MILLIEQUIVALENTS
     Route: 042
     Dates: start: 20190711, end: 20190711
  11. ABRAXANE [Suspect]
     Active Substance: PACLITAXEL
     Dosage: 189 MILLIGRAM
     Route: 042
     Dates: start: 20190808, end: 20190808
  12. ABRAXANE [Suspect]
     Active Substance: PACLITAXEL
     Dosage: 189 MILLIGRAM
     Route: 042
     Dates: start: 20190725, end: 20190725
  13. MEDI4736 (DURVALUMAB) [Suspect]
     Active Substance: DURVALUMAB
     Dosage: 1500 MILLIGRAM
     Route: 042
     Dates: start: 20190801, end: 20190801
  14. MEDI4736 (DURVALUMAB) [Suspect]
     Active Substance: DURVALUMAB
     Dosage: 1500 MILLIGRAM
     Route: 042
     Dates: start: 20191101, end: 20191101
  15. PLACEBO [Suspect]
     Active Substance: UNSPECIFIED INGREDIENT
     Indication: NON-SMALL CELL LUNG CANCER STAGE IV
     Route: 048
  16. ABRAXANE [Suspect]
     Active Substance: PACLITAXEL
     Dosage: 189 MILLIGRAM
     Route: 042
     Dates: start: 20190823, end: 20190823
  17. CARBOPLATIN. [Suspect]
     Active Substance: CARBOPLATIN
     Dosage: 447 MILLIGRAM
     Route: 042
     Dates: start: 20190823, end: 20190823
  18. ABRAXANE [Suspect]
     Active Substance: PACLITAXEL
     Dosage: 189 MILLIGRAM
     Route: 042
     Dates: start: 20190815, end: 20190815
  19. ABRAXANE [Suspect]
     Active Substance: PACLITAXEL
     Dosage: 151 MILLIGRAM
     Route: 042
     Dates: start: 20190919, end: 20190919
  20. OLAPARIB. [Suspect]
     Active Substance: OLAPARIB
     Indication: NON-SMALL CELL LUNG CANCER STAGE IV
     Dosage: 300 MILLIGRAM
     Route: 048
     Dates: start: 20191126, end: 20191227
  21. ABRAXANE [Suspect]
     Active Substance: PACLITAXEL
     Dosage: 189 MILLIGRAM
     Route: 042
     Dates: start: 20190801, end: 20190801
  22. ABRAXANE [Suspect]
     Active Substance: PACLITAXEL
     Dosage: 151 MILLIGRAM
     Route: 042
     Dates: start: 20190912, end: 20190912
  23. ABRAXANE [Suspect]
     Active Substance: PACLITAXEL
     Dosage: 151 MILLIGRAM
     Route: 042
     Dates: start: 20191010, end: 20191010
  24. MEDI4736 (DURVALUMAB) [Suspect]
     Active Substance: DURVALUMAB
     Dosage: 1500 MILLIGRAM
     Route: 042
     Dates: start: 20191003, end: 20191003

REACTIONS (1)
  - Sepsis [Recovered/Resolved]

NARRATIVE: CASE EVENT DATE: 20200108
